FAERS Safety Report 10901617 (Version 1)
Quarter: 2015Q1

REPORT INFORMATION
  Report Type: Report from Study
  Country: US (occurrence: US)
  Receive Date: 20150310
  Receipt Date: 20150310
  Transmission Date: 20150721
  Serious: Yes (Other)
  Sender: FDA-Public Use
  Company Number: US-BAYER-2015-013886

PATIENT
  Age: 67 Year
  Sex: Male

DRUGS (1)
  1. STIVARGA [Suspect]
     Active Substance: REGORAFENIB
     Indication: METASTASES TO LUNG
     Dosage: 120 MG, QD, 3 TABLETS EVERY MORNING AFTER LIGHT BREAKFAST FOR 3 WEEKS ON THEN 1 WEEK OFF
     Route: 048
     Dates: start: 20141230, end: 20150301

REACTIONS (5)
  - Lung neoplasm malignant [None]
  - Palpitations [None]
  - Drug ineffective for unapproved indication [None]
  - Dyspnoea [None]
  - Product use issue [None]
